FAERS Safety Report 8076231-9 (Version None)
Quarter: 2012Q1

REPORT INFORMATION
  Report Type: 
  Country: None (occurrence: None)
  Receive Date: 20120127
  Receipt Date: 20120120
  Transmission Date: 20120608
  Serious: Yes (Other)
  Sender: FDA-Public Use
  Company Number: BR-PFIZER INC-2012017902

PATIENT
  Age: 77 Year
  Sex: Female
  Weight: 102 kg

DRUGS (5)
  1. METFORMIN HYDROCHLORIDE [Concomitant]
     Dosage: UNK
     Dates: start: 20110601
  2. CITONEURIN [Concomitant]
     Indication: VITAMIN SUPPLEMENTATION
     Dosage: UNK
  3. RASILEZ [Concomitant]
     Indication: HYPERTENSION
     Dosage: UNK
     Dates: start: 20120112
  4. LYRICA [Suspect]
     Indication: PAIN IN EXTREMITY
     Dosage: TWO TABLETS OF 75MG (150 MG), DAILY
     Route: 048
     Dates: start: 20120112
  5. SYNTHROID [Concomitant]
     Dosage: UNK
     Dates: start: 20110601

REACTIONS (7)
  - FEELING COLD [None]
  - MOBILITY DECREASED [None]
  - DYSPHAGIA [None]
  - BODY TEMPERATURE DECREASED [None]
  - POSTURE ABNORMAL [None]
  - ASTHENIA [None]
  - SPEECH DISORDER [None]
